FAERS Safety Report 19069648 (Version 1)
Quarter: 2021Q1

REPORT INFORMATION
  Report Type: Spontaneous
  Country: JP (occurrence: JP)
  Receive Date: 20210329
  Receipt Date: 20210329
  Transmission Date: 20210420
  Serious: Yes (Hospitalization, Other)
  Sender: FDA-Public Use
  Company Number: JP-DSJP-DSJ-2021-105665

PATIENT
  Age: 8 Decade
  Sex: Male
  Weight: 60 kg

DRUGS (2)
  1. OPDIVO [Suspect]
     Active Substance: NIVOLUMAB
     Dosage: 240MG/DAY
     Route: 065
     Dates: start: 20200827, end: 20201105
  2. ENHERTU [Suspect]
     Active Substance: FAM-TRASTUZUMAB DERUXTECAN-NXKI
     Indication: ADENOCARCINOMA GASTRIC
     Dosage: 400 MG, 2020/11/19, 2020/12/17, 2021/01/07, 2021/01/28
     Route: 041
     Dates: start: 20201119, end: 20210128

REACTIONS (7)
  - Ascites [Unknown]
  - Secondary adrenocortical insufficiency [Unknown]
  - Pyrexia [Recovered/Resolved]
  - Cholecystitis [Unknown]
  - Decreased appetite [Recovered/Resolved]
  - Taste disorder [Unknown]
  - Ileus paralytic [Unknown]

NARRATIVE: CASE EVENT DATE: 20210131
